FAERS Safety Report 8975718 (Version 4)
Quarter: 2013Q3

REPORT INFORMATION
  Report Type: Report from Study
  Country: CO (occurrence: CO)
  Receive Date: 20121219
  Receipt Date: 20130924
  Transmission Date: 20140515
  Serious: Yes (Hospitalization, Other)
  Sender: FDA-Public Use
  Company Number: PHHY2012CO115443

PATIENT
  Age: 39 Year
  Sex: Male

DRUGS (6)
  1. SANDOSTATIN LAR [Suspect]
     Indication: ACROMEGALY
     Dosage: 20 MG, ONCE A MONTH
     Route: 030
     Dates: start: 20120901, end: 20121101
  2. SANDOSTATIN LAR [Suspect]
     Dosage: 20 MG, EACH 28 DAYS
     Route: 030
     Dates: start: 20130831, end: 20130831
  3. PREDNISOLONE [Concomitant]
     Dosage: UNK UKN, UNK
  4. LEVOTHYROXINE [Concomitant]
     Dosage: UNK UKN, UNK
  5. OMEPRAZOLE [Concomitant]
     Dosage: UNK UKN, UNK
  6. EPAMIN [Concomitant]
     Dosage: UNK UKN, UNK

REACTIONS (9)
  - Infection [Unknown]
  - Convulsion [Not Recovered/Not Resolved]
  - Pituitary tumour benign [Recovering/Resolving]
  - Haemorrhage [Recovering/Resolving]
  - Fistula [Recovering/Resolving]
  - Meningitis [Recovering/Resolving]
  - Lung infection [Recovering/Resolving]
  - Pain [Recovering/Resolving]
  - Headache [Recovering/Resolving]
